FAERS Safety Report 8852305 (Version 1)
Quarter: 2012Q4

REPORT INFORMATION
  Report Type: 
  Country: US (occurrence: US)
  Receive Date: 20121022
  Receipt Date: 20121022
  Transmission Date: 20130627
  Serious: Yes (Other)
  Sender: FDA-Public Use
  Company Number: US-UCBSA-069181

PATIENT

DRUGS (1)
  1. KEPPRA [Suspect]
     Dosage: UNKNOWN DOSE

REACTIONS (1)
  - Diabetes mellitus [Unknown]
